FAERS Safety Report 5223412-5 (Version None)
Quarter: 2007Q1

REPORT INFORMATION
  Report Type: 
  Country: None (occurrence: None)
  Receive Date: 20070124
  Receipt Date: 20070115
  Transmission Date: 20070707
  Serious: Yes (Hospitalization, Other)
  Sender: FDA-Public Use
  Company Number: FRWYE193617JAN07

PATIENT
  Age: 40 Year
  Sex: Male

DRUGS (3)
  1. EFFEXOR [Suspect]
     Dosage: OVERDOSE AMOUNT:  450 MG ORAL
     Route: 048
     Dates: start: 19980901, end: 19980901
  2. ANAFRANIL [Suspect]
     Dosage: OVERDOSE AMOUNT:  550 MG ORAL
     Route: 047
     Dates: start: 19980901, end: 19980901
  3. LEXOMIL (BROMAZEPAM, , 0) [Suspect]
     Dosage: OVERDOSE AMOUNT:  120 MG ORAL
     Route: 048
     Dates: start: 19980901, end: 19980901

REACTIONS (5)
  - COMA [None]
  - OVERDOSE [None]
  - RESPIRATORY FAILURE [None]
  - SOMNOLENCE [None]
  - TACHYCARDIA [None]
